FAERS Safety Report 5087471-5 (Version None)
Quarter: 2006Q3

REPORT INFORMATION
  Report Type: 
  Country: None (occurrence: None)
  Receive Date: 20060824
  Receipt Date: 20060807
  Transmission Date: 20061208
  Serious: Yes (Hospitalization)
  Sender: FDA-Public Use
  Company Number: JP-AVENTIS-200612483JP

PATIENT
  Age: 62 Year
  Sex: Female

DRUGS (4)
  1. ALLEGRA [Suspect]
     Route: 048
     Dates: start: 20060705, end: 20060707
  2. CLARITH [Suspect]
     Route: 048
     Dates: start: 20060705, end: 20060707
  3. CYANOCOBALAMIN [Concomitant]
     Dates: start: 20060705, end: 20060707
  4. MUCOSTA [Concomitant]
     Dates: start: 20060705, end: 20060707

REACTIONS (6)
  - ABDOMINAL PAIN UPPER [None]
  - ALANINE AMINOTRANSFERASE INCREASED [None]
  - ASPARTATE AMINOTRANSFERASE INCREASED [None]
  - BLOOD BILIRUBIN INCREASED [None]
  - JAUNDICE [None]
  - LIVER DISORDER [None]
